FAERS Safety Report 9370385 (Version 3)
Quarter: 2013Q3

REPORT INFORMATION
  Report Type: Report from Study
  Country: CA (occurrence: CA)
  Receive Date: 20130626
  Receipt Date: 20130719
  Transmission Date: 20140515
  Serious: Yes (Hospitalization)
  Sender: FDA-Public Use
  Company Number: CA-ABBOTT-13P-028-1107364-00

PATIENT
  Age: 54 Year
  Sex: Female

DRUGS (6)
  1. HUMIRA [Suspect]
     Indication: ANKYLOSING SPONDYLITIS
     Route: 058
     Dates: start: 20121219, end: 20130606
  2. BENADRYL [Suspect]
     Indication: PRURITUS
     Dates: start: 201306
  3. BENADRYL [Suspect]
     Indication: LIP SWELLING
  4. PROBIOTICS [Suspect]
     Indication: PRODUCT USED FOR UNKNOWN INDICATION
  5. GLUCOSAMINE [Suspect]
     Indication: PRODUCT USED FOR UNKNOWN INDICATION
  6. TYLENOL [Concomitant]
     Indication: PROPHYLAXIS

REACTIONS (5)
  - Pruritus [Recovered/Resolved]
  - Loss of consciousness [Recovered/Resolved]
  - Lip swelling [Recovered/Resolved]
  - Type IV hypersensitivity reaction [Recovered/Resolved]
  - Dizziness [Recovered/Resolved]
